FAERS Safety Report 11719197 (Version 1)
Quarter: 2015Q4

REPORT INFORMATION
  Report Type: Spontaneous
  Country: US (occurrence: None)
  Receive Date: 20151109
  Receipt Date: 20151109
  Transmission Date: 20160304
  Serious: No
  Sender: FDA-Public Use
  Company Number: None

PATIENT

DRUGS (2)
  1. IFLOW HOMEPUMP ECLIPSE ELASTOMERIC PUMP [Concomitant]
  2. ROCEPHIN [Suspect]
     Active Substance: CEFTRIAXONE SODIUM

REACTIONS (3)
  - Product quality issue [None]
  - Device malfunction [None]
  - Device failure [None]
